FAERS Safety Report 13229212 (Version 1)
Quarter: 2017Q1

REPORT INFORMATION
  Report Type: Other
  Country: US (occurrence: US)
  Receive Date: 20170214
  Receipt Date: 20170214
  Transmission Date: 20170428
  Serious: Yes (Other)
  Sender: FDA-Public Use
  Company Number: US-DEXPHARM-20170175

PATIENT
  Age: 44 Year
  Sex: Female

DRUGS (4)
  1. ASPIRIN. [Suspect]
     Active Substance: ASPIRIN
     Indication: ASPIRIN-EXACERBATED RESPIRATORY DISEASE
  2. FAMOTIDINE. [Suspect]
     Active Substance: FAMOTIDINE
  3. OMEPRAZOLE. [Suspect]
     Active Substance: OMEPRAZOLE
  4. ASPIRIN. [Suspect]
     Active Substance: ASPIRIN
     Indication: ASPIRIN-EXACERBATED RESPIRATORY DISEASE

REACTIONS (1)
  - Eosinophilic oesophagitis [Recovering/Resolving]
